FAERS Safety Report 11425168 (Version 2)
Quarter: 2015Q3

REPORT INFORMATION
  Report Type: Spontaneous
  Country: US (occurrence: US)
  Receive Date: 20150821
  Receipt Date: 20150903
  Transmission Date: 20151125
  Serious: No
  Sender: FDA-Public Use
  Company Number: US-ELI_LILLY_AND_COMPANY-US201302009795

PATIENT
  Sex: Female

DRUGS (3)
  1. HUMALOG [Suspect]
     Active Substance: INSULIN LISPRO
     Indication: DIABETES MELLITUS
     Dosage: 66 U, EACH MORNING
  2. HUMULIN 70/30 [Suspect]
     Active Substance: INSULIN HUMAN
  3. HUMALOG [Suspect]
     Active Substance: INSULIN LISPRO
     Dosage: 22 U, EACH EVENING

REACTIONS (2)
  - Wrong drug administered [Unknown]
  - Therapeutic response decreased [Unknown]

NARRATIVE: CASE EVENT DATE: 201206
